FAERS Safety Report 4527355-1 (Version None)
Quarter: 2004Q4

REPORT INFORMATION
  Report Type: 
  Country: None (occurrence: None)
  Receive Date: 20041130
  Receipt Date: 20040913
  Transmission Date: 20050328
  Serious: Yes (Hospitalization)
  Sender: FDA-Public Use
  Company Number: FABR-10758

PATIENT
  Age: 35 Year
  Sex: Male
  Weight: 43 kg

DRUGS (1)
  1. FABRAZYME [Suspect]
     Indication: FABRY'S DISEASE
     Dosage: 1 MG/KG Q2WKS IV
     Route: 042
     Dates: start: 20040409

REACTIONS (3)
  - CEREBRAL INFARCTION [None]
  - NAUSEA [None]
  - VOMITING [None]
